FAERS Safety Report 8495254-9 (Version None)
Quarter: 2012Q3

REPORT INFORMATION
  Report Type: 
  Country: None (occurrence: None)
  Receive Date: 20120709
  Receipt Date: 20120702
  Transmission Date: 20120928
  Serious: Yes (Hospitalization)
  Sender: FDA-Public Use
  Company Number: US-BAYER-2012-021936

PATIENT
  Age: 25 Year
  Sex: Female
  Weight: 77.098 kg

DRUGS (2)
  1. YAZ [Suspect]
     Indication: CONTRACEPTION
     Dosage: UNK
     Dates: start: 20090413, end: 20100423
  2. YAZ [Suspect]
     Indication: MENSTRUAL CYCLE MANAGEMENT

REACTIONS (11)
  - PYREXIA [None]
  - PAIN [None]
  - CHOLECYSTITIS [None]
  - BILIARY DILATATION [None]
  - ABDOMINAL PAIN [None]
  - NAUSEA [None]
  - CHOLELITHIASIS [None]
  - CHOLANGITIS [None]
  - JAUNDICE [None]
  - BILE DUCT STONE [None]
  - VOMITING [None]
